FAERS Safety Report 20158411 (Version 1)
Quarter: 2021Q4

REPORT INFORMATION
  Report Type: Spontaneous
  Country: US (occurrence: US)
  Receive Date: 20211207
  Receipt Date: 20211207
  Transmission Date: 20220304
  Serious: No
  Sender: FDA-Public Use
  Company Number: US-SA-SAC20211201000908

PATIENT
  Age: 53 Year
  Sex: Male

DRUGS (2)
  1. DUPIXENT [Suspect]
     Active Substance: DUPILUMAB
     Indication: Dermatitis atopic
     Dosage: 600 MG, 1X
     Route: 058
     Dates: start: 20211118, end: 20211118
  2. COVID-19 VACCINE NOS [Suspect]
     Active Substance: COVID-19 VACCINE NOS
     Indication: Immunisation

REACTIONS (7)
  - Eczema [Unknown]
  - Dry skin [Unknown]
  - Pruritus [Unknown]
  - Scratch [Unknown]
  - Skin haemorrhage [Unknown]
  - Disease progression [Unknown]
  - Rash [Unknown]

NARRATIVE: CASE EVENT DATE: 20211101
